FAERS Safety Report 23863685 (Version 1)
Quarter: 2024Q2

REPORT INFORMATION
  Report Type: Report from Study
  Country: SA (occurrence: SA)
  Receive Date: 20240516
  Receipt Date: 20240516
  Transmission Date: 20240715
  Serious: Yes (Death)
  Sender: FDA-Public Use
  Company Number: SA-GSK-SA2023EME050415

PATIENT

DRUGS (2)
  1. BELIMUMAB [Suspect]
     Active Substance: BELIMUMAB
     Indication: Systemic lupus erythematosus
     Dosage: 100 MG/KG, MO
     Route: 042
     Dates: start: 20220204
  2. BELIMUMAB [Suspect]
     Active Substance: BELIMUMAB
     Dosage: 100 MG/KG, MO
     Route: 042
     Dates: start: 20220309, end: 20240321

REACTIONS (5)
  - Cardiac disorder [Fatal]
  - Palpitations [Fatal]
  - Generalised oedema [Fatal]
  - Disease complication [Fatal]
  - Inappropriate schedule of product administration [Unknown]

NARRATIVE: CASE EVENT DATE: 20230312
